FAERS Safety Report 10635218 (Version 2)
Quarter: 2018Q4

REPORT INFORMATION
  Report Type: Spontaneous
  Country: US (occurrence: US)
  Receive Date: 20141205
  Receipt Date: 20181126
  Transmission Date: 20190204
  Serious: Yes (Other)
  Sender: FDA-Public Use
  Company Number: US-TEVA-527001USA

PATIENT
  Sex: Female

DRUGS (1)
  1. PARAGARD T 380A [Suspect]
     Active Substance: COPPER
     Indication: CONTRACEPTION
     Route: 063
     Dates: start: 20130627, end: 201412

REACTIONS (5)
  - Device dislocation [Recovered/Resolved]
  - Exposure via breast milk [Unknown]
  - Pregnancy with contraceptive device [Not Recovered/Not Resolved]
  - Maternal exposure during pregnancy [Unknown]
  - Muscle spasms [Unknown]

NARRATIVE: CASE EVENT DATE: 20141117
